FAERS Safety Report 5214711-1 (Version None)
Quarter: 2007Q1

REPORT INFORMATION
  Report Type: 
  Country: None (occurrence: None)
  Receive Date: 20061113
  Receipt Date: 20060905
  Transmission Date: 20070707
  Serious: Yes (Other)
  Sender: FDA-Public Use
  Company Number: US-JNJFOC-20060901245

PATIENT
  Age: 29 Year
  Sex: Female
  Weight: 101.1 kg

DRUGS (1)
  1. LEVAQUIN [Suspect]
     Dosage: 500 MG, IN 1 DAY, INTRAVENOUS
     Route: 042
     Dates: start: 20060904, end: 20060905

REACTIONS (1)
  - HYPERSENSITIVITY [None]
